FAERS Safety Report 18627068 (Version 1)
Quarter: 2020Q4

REPORT INFORMATION
  Report Type: Spontaneous
  Country: US (occurrence: US)
  Receive Date: 20201217
  Receipt Date: 20201217
  Transmission Date: 20210114
  Serious: Yes (Other)
  Sender: FDA-Public Use
  Company Number: US-AXELLIA-003576

PATIENT
  Age: 56 Year
  Sex: Female
  Weight: 114.8 kg

DRUGS (1)
  1. VANCOMYCIN FRESENIUS KABI [Suspect]
     Active Substance: VANCOMYCIN HYDROCHLORIDE
     Indication: BACTERIAL INFECTION
     Dosage: STRENGTH:1000MG,  ONCE
     Route: 042
     Dates: start: 20200430, end: 20200430

REACTIONS (3)
  - Burning sensation [Recovered/Resolved]
  - Headache [Recovered/Resolved]
  - Hypotension [Recovered/Resolved]

NARRATIVE: CASE EVENT DATE: 20200430
